FAERS Safety Report 4438816-8 (Version None)
Quarter: 2004Q3

REPORT INFORMATION
  Report Type: 
  Country: None (occurrence: None)
  Receive Date: 20040830
  Receipt Date: 20040825
  Transmission Date: 20050211
  Serious: Yes (Disabling)
  Sender: FDA-Public Use
  Company Number: HQWYE876705MAR03

PATIENT
  Age: 35 Year
  Sex: Female

DRUGS (2)
  1. DIMETAPP [Suspect]
     Dosage: ORAL
  2. ROBTUSSION CF (GUAIFENSEIN/DEXTROMETHORPHAN/PHENYLPROPANOLAMINE, SYRUP [Suspect]
     Dosage: ORAL
     Route: 048

REACTIONS (3)
  - ASTHMA [None]
  - CEREBROVASCULAR ACCIDENT [None]
  - HYPERTENSION [None]
